FAERS Safety Report 9428717 (Version 1)
Quarter: 2013Q3

REPORT INFORMATION
  Report Type: Spontaneous
  Country: US (occurrence: US)
  Receive Date: 20130730
  Receipt Date: 20130730
  Transmission Date: 20140515
  Serious: No
  Sender: FDA-Public Use
  Company Number: US-ABBOTT-12P-163-1021694-00

PATIENT
  Sex: Female
  Weight: 89.89 kg

DRUGS (3)
  1. NIASPAN (COATED) [Suspect]
     Indication: BLOOD CHOLESTEROL
     Dates: start: 20121204
  2. LISINOPRIL [Concomitant]
     Indication: HYPERTENSION
  3. ENALAPRIL [Concomitant]
     Indication: HYPERTENSION

REACTIONS (4)
  - Fatigue [Not Recovered/Not Resolved]
  - Diarrhoea [Not Recovered/Not Resolved]
  - Myalgia [Not Recovered/Not Resolved]
  - Flank pain [Not Recovered/Not Resolved]
